FAERS Safety Report 23017900 (Version 3)
Quarter: 2024Q1

REPORT INFORMATION
  Report Type: Report from Study
  Country: US (occurrence: US)
  Receive Date: 20231003
  Receipt Date: 20240102
  Transmission Date: 20240409
  Serious: No
  Sender: FDA-Public Use
  Company Number: US-DECIPHERA PHARMACEUTICALS LLC-2023US000860

PATIENT
  Age: 66 Year
  Sex: Female

DRUGS (1)
  1. QINLOCK [Suspect]
     Active Substance: RIPRETINIB
     Indication: Gastrointestinal stromal tumour
     Dosage: 150 MILLIGRAM, QD
     Route: 048
     Dates: start: 20230915

REACTIONS (15)
  - Throat tightness [Unknown]
  - Oropharyngeal pain [Unknown]
  - Blood pressure abnormal [Unknown]
  - Dysphagia [Unknown]
  - Erythema [Unknown]
  - Burning sensation [Unknown]
  - Paraesthesia [Unknown]
  - Musculoskeletal stiffness [Unknown]
  - Balance disorder [Unknown]
  - Gait disturbance [Unknown]
  - Pain [Unknown]
  - Pain in extremity [Unknown]
  - Arthritis [Unknown]
  - Nausea [Unknown]
  - Dyspnoea [Unknown]
